FAERS Safety Report 9160221 (Version 1)
Quarter: 2013Q1

REPORT INFORMATION
  Report Type: Spontaneous
  Country: BR (occurrence: None)
  Receive Date: 20130219
  Receipt Date: 20130219
  Transmission Date: 20140127
  Serious: Yes (Other)
  Sender: FDA-Public Use
  Company Number: 7192203

PATIENT
  Age: 41 Year
  Sex: Female

DRUGS (7)
  1. LEVOTHYROXINE (LEVOTHYROXINE) [Suspect]
     Indication: PRODUCT USED FOR UNKNOWN INDICATION
  2. AZATHIOPRINE (AZATHIOPRINE) [Suspect]
     Indication: PRODUCT USED FOR UNKNOWN INDICATION
  3. CYCLOSPORINE (CICLOSPORIN) [Suspect]
     Indication: PRODUCT USED FOR UNKNOWN INDICATION
  4. FERROUS SULFATE (FERROUS SULFATE) [Suspect]
     Indication: PRODUCT USED FOR UNKNOWN INDICATION
  5. METHYLDOPA (METHYLDOPA) [Suspect]
     Indication: PRODUCT USED FOR UNKNOWN INDICATION
  6. HYDROCHLOROTHIAZIDE (HYDROCHLOROTHIAZIDE) [Concomitant]
  7. ENALAPRIL [Concomitant]

REACTIONS (5)
  - Urinary tract infection [None]
  - Anaemia [None]
  - Blood pressure increased [None]
  - Maternal exposure during pregnancy [None]
  - Uterine hypotonus [None]
